FAERS Safety Report 11061043 (Version 2)
Quarter: 2015Q2

REPORT INFORMATION
  Report Type: Spontaneous
  Country: US (occurrence: US)
  Receive Date: 20150424
  Receipt Date: 20150611
  Transmission Date: 20150821
  Serious: Yes (Hospitalization, Other)
  Sender: FDA-Public Use
  Company Number: US-009507513-1503USA013902

PATIENT
  Age: 25 Year
  Sex: Female
  Weight: 86.17 kg

DRUGS (1)
  1. NEXPLANON [Suspect]
     Active Substance: ETONOGESTREL
     Indication: CONTRACEPTION
     Dosage: 1 ROD, ONCE EVERY 3 YEARS
     Route: 059
     Dates: start: 20150316, end: 20150326

REACTIONS (6)
  - Urticaria [Unknown]
  - Rash [Unknown]
  - Peripheral swelling [Unknown]
  - Pharyngeal oedema [Unknown]
  - Unintended pregnancy [Unknown]
  - Oropharyngeal pain [Unknown]

NARRATIVE: CASE EVENT DATE: 2015
